FAERS Safety Report 11591899 (Version 1)
Quarter: 2015Q4

REPORT INFORMATION
  Report Type: Report from Study
  Country: DE (occurrence: DE)
  Receive Date: 20151005
  Receipt Date: 20151005
  Transmission Date: 20160304
  Serious: Yes (Hospitalization, Disabling)
  Sender: FDA-Public Use
  Company Number: DE-BEH-2015054325

PATIENT
  Age: 64 Year
  Sex: Female
  Weight: 67 kg

DRUGS (8)
  1. ANTIEMETICS AND ANTINAUSEANTS [Concomitant]
     Active Substance: UNSPECIFIED INGREDIENT
  2. PANTOZOL 40 MG [Concomitant]
     Indication: CROHN^S DISEASE
     Route: 048
     Dates: start: 20150818
  3. PRIVIGEN [Suspect]
     Active Substance: HUMAN IMMUNOGLOBULIN G
     Indication: SECONDARY IMMUNODEFICIENCY
     Route: 042
     Dates: start: 20150805
  4. PROTON PUMP INHIBITORS [Concomitant]
     Active Substance: UNSPECIFIED INGREDIENT
  5. PREDNISON 20 MG [Concomitant]
     Indication: IMMUNE THROMBOCYTOPENIC PURPURA
     Route: 042
     Dates: start: 20150818
  6. CEFUROX 500 MG [Concomitant]
     Indication: RENAL FAILURE
     Route: 048
     Dates: start: 20150818
  7. ANTIBIOTICS [Concomitant]
     Active Substance: UNSPECIFIED INGREDIENT
  8. PRIVIGEN [Suspect]
     Active Substance: HUMAN IMMUNOGLOBULIN G
     Indication: NON-HODGKIN^S LYMPHOMA
     Dosage: INFUSION RATE MIN. 18/MAX. 250 ML/MIN
     Route: 042
     Dates: start: 20150907, end: 20150907

REACTIONS (3)
  - Hot flush [Unknown]
  - Acute kidney injury [Recovered/Resolved with Sequelae]
  - Cystitis [Recovered/Resolved with Sequelae]

NARRATIVE: CASE EVENT DATE: 20150828
